FAERS Safety Report 13102328 (Version 1)
Quarter: 2017Q1

REPORT INFORMATION
  Report Type: Spontaneous
  Country: FR (occurrence: FR)
  Receive Date: 20170110
  Receipt Date: 20170110
  Transmission Date: 20170428
  Serious: Yes (Disabling, Other)
  Sender: FDA-Public Use
  Company Number: ALCN2016FR007872

PATIENT
  Age: 78 Year
  Sex: Female
  Weight: 75 kg

DRUGS (3)
  1. AZOPT [Suspect]
     Active Substance: BRINZOLAMIDE
     Indication: GLAUCOMA
     Dosage: 1 GTT, BID
     Route: 047
  2. MONOPROST [Concomitant]
     Active Substance: LATANOPROST
     Indication: GLAUCOMA
     Dosage: 1 GTT, QD
     Route: 047
  3. AZOPT [Suspect]
     Active Substance: BRINZOLAMIDE
     Dosage: 1 GTT, ONCE/SINGLE
     Route: 047

REACTIONS (3)
  - Product deposit [Not Recovered/Not Resolved]
  - Vision blurred [Unknown]
  - Intraocular pressure increased [Not Recovered/Not Resolved]

NARRATIVE: CASE EVENT DATE: 201611
